FAERS Safety Report 7197737-0 (Version None)
Quarter: 2010Q4

REPORT INFORMATION
  Report Type: 
  Country: None (occurrence: None)
  Receive Date: 20101227
  Receipt Date: 20101213
  Transmission Date: 20110411
  Serious: Yes (Death)
  Sender: FDA-Public Use
  Company Number: JP-SANOFI-AVENTIS-2010SA076233

PATIENT
  Age: 61 Year
  Sex: Female
  Weight: 41 kg

DRUGS (12)
  1. ELPLAT [Suspect]
     Indication: LARGE INTESTINE CARCINOMA
     Route: 041
     Dates: start: 20101115, end: 20101115
  2. ELPLAT [Suspect]
     Route: 041
     Dates: start: 20101208, end: 20101208
  3. BEVACIZUMAB [Suspect]
     Indication: LARGE INTESTINE CARCINOMA
     Route: 041
     Dates: start: 20101208, end: 20101208
  4. CALCIUM LEVOFOLINATE [Concomitant]
     Indication: LARGE INTESTINE CARCINOMA
     Route: 041
     Dates: start: 20101115, end: 20101115
  5. CALCIUM LEVOFOLINATE [Concomitant]
     Route: 041
     Dates: start: 20101208, end: 20101208
  6. FLUOROURACIL [Concomitant]
     Route: 040
     Dates: start: 20101115, end: 20101115
  7. FLUOROURACIL [Concomitant]
     Route: 041
     Dates: start: 20101115, end: 20101116
  8. FLUOROURACIL [Concomitant]
     Route: 040
     Dates: start: 20101208, end: 20101208
  9. FLUOROURACIL [Concomitant]
     Route: 041
     Dates: start: 20101208, end: 20101209
  10. CALCICOL [Concomitant]
     Indication: PREMEDICATION
     Route: 041
     Dates: start: 20101115, end: 20101208
  11. MAGNESIUM SULFATE [Concomitant]
     Indication: PREMEDICATION
     Route: 041
     Dates: start: 20101115, end: 20101208
  12. SOLDEM 3A [Concomitant]
     Indication: MALAISE
     Dosage: TID, BID, SID
     Route: 041
     Dates: start: 20101117, end: 20101126

REACTIONS (1)
  - DEATH [None]
